FAERS Safety Report 17814505 (Version 3)
Quarter: 2020Q2

REPORT INFORMATION
  Report Type: Report from Study
  Country: US (occurrence: US)
  Receive Date: 20200522
  Receipt Date: 20200601
  Transmission Date: 20200714
  Serious: Yes (Death)
  Sender: FDA-Public Use
  Company Number: US-ROCHE-2606290

PATIENT
  Age: 73 Year
  Sex: Male

DRUGS (3)
  1. TECENTRIQ [Suspect]
     Active Substance: ATEZOLIZUMAB
     Indication: PROSTATE CANCER
     Dosage: ADMINISTER 1200 MG AS AN INTRAVENOUS INFUSION OVER 60 MIN
     Route: 042
     Dates: start: 20200325
  2. LORAZEPAM. [Concomitant]
     Active Substance: LORAZEPAM
  3. TECENTRIQ [Suspect]
     Active Substance: ATEZOLIZUMAB
     Indication: BONE CANCER

REACTIONS (3)
  - Death [Fatal]
  - Off label use [Unknown]
  - Intentional product use issue [Unknown]

NARRATIVE: CASE EVENT DATE: 20200501
